FAERS Safety Report 8010456-3 (Version None)
Quarter: 2011Q4

REPORT INFORMATION
  Report Type: 
  Country: None (occurrence: None)
  Receive Date: 20111222
  Receipt Date: 20060210
  Transmission Date: 20120403
  Serious: Yes (Hospitalization)
  Sender: FDA-Public Use
  Company Number: CARD20110001

PATIENT
  Age: 20 Month
  Sex: Female

DRUGS (2)
  1. AMOXICILLIN AND CLAVULANATE POTASSIUM [Suspect]
     Indication: RESPIRATORY TRACT INFECTION
  2. CARDEC DM SYRUP (PHENYLEPHRINE HYDROCHLORIDE, CHLORPHENAMINE MALEATE, [Suspect]
     Indication: RESPIRATORY TRACT INFECTION
     Dosage: ORAL
     Dates: start: 20060201, end: 20060201

REACTIONS (2)
  - ANAPHYLACTIC REACTION [None]
  - RESPIRATORY DISTRESS [None]
